FAERS Safety Report 23753106 (Version 1)
Quarter: 2024Q2

REPORT INFORMATION
  Report Type: Other
  Country: CN (occurrence: None)
  Receive Date: 20240417
  Receipt Date: 20240417
  Transmission Date: 20240716
  Serious: Yes (Death, Other)
  Sender: FDA-Public Use
  Company Number: CN-ROCHE-3544445

PATIENT

DRUGS (3)
  1. BEVACIZUMAB [Suspect]
     Active Substance: BEVACIZUMAB
     Indication: Colorectal cancer metastatic
     Dosage: ON DAY 1
     Route: 065
  2. CAPECITABINE [Suspect]
     Active Substance: CAPECITABINE
     Indication: Colorectal cancer metastatic
     Dosage: ON DAYS 1-14.
     Route: 048
  3. OXALIPLATIN [Suspect]
     Active Substance: OXALIPLATIN
     Indication: Colorectal cancer metastatic
     Route: 042

REACTIONS (38)
  - Pneumonia [Fatal]
  - Anaemia [Unknown]
  - Gastrointestinal obstruction [Unknown]
  - Leukopenia [Unknown]
  - Anastomotic fistula [Unknown]
  - Arrhythmia [Unknown]
  - Multiple organ dysfunction syndrome [Unknown]
  - Hepatic function abnormal [Unknown]
  - Nausea [Unknown]
  - Urinary tract infection [Unknown]
  - Cholelithiasis [Unknown]
  - Intestinal perforation [Unknown]
  - Hypertension [Unknown]
  - Hypersensitivity [Unknown]
  - Aspartate aminotransferase increased [Unknown]
  - Alanine aminotransferase increased [Unknown]
  - Vomiting [Unknown]
  - Thrombocytopenia [Unknown]
  - Palmar-plantar erythrodysaesthesia syndrome [Unknown]
  - Diarrhoea [Unknown]
  - Stomatitis [Unknown]
  - Hyperbilirubinaemia [Unknown]
  - Abdominal pain [Unknown]
  - Blood thyroid stimulating hormone increased [Unknown]
  - Haemorrhage [Unknown]
  - Pyrexia [Unknown]
  - Hypokalaemia [Unknown]
  - Decreased appetite [Unknown]
  - Glucocorticoid deficiency [Unknown]
  - Hyperthyroidism [Unknown]
  - Thrombosis [Unknown]
  - Hyponatraemia [Unknown]
  - Hypothyroidism [Unknown]
  - Fatigue [Unknown]
  - Hypoproteinaemia [Unknown]
  - Neurotoxicity [Unknown]
  - Proteinuria [Unknown]
  - Constipation [Unknown]
